FAERS Safety Report 16673567 (Version 2)
Quarter: 2019Q3

REPORT INFORMATION
  Report Type: Spontaneous
  Country: DE (occurrence: DE)
  Receive Date: 20190806
  Receipt Date: 20190829
  Transmission Date: 20191004
  Serious: Yes (Other)
  Sender: FDA-Public Use
  Company Number: DE-ASTRAZENECA-2019SF10976

PATIENT
  Age: 66 Year
  Sex: Female

DRUGS (12)
  1. FASLODEX [Suspect]
     Active Substance: FULVESTRANT
     Indication: BREAST CANCER METASTATIC
     Dosage: UNK
     Route: 030
     Dates: start: 201704
  2. PALBOCICLIB [Suspect]
     Active Substance: PALBOCICLIB
     Indication: BREAST CANCER METASTATIC
     Dosage: UNK
     Route: 048
     Dates: start: 201704
  3. AROMASIN [Suspect]
     Active Substance: EXEMESTANE
     Indication: BREAST CANCER METASTATIC
     Route: 065
     Dates: start: 200204
  4. CAPECITABINE. [Suspect]
     Active Substance: CAPECITABINE
     Indication: BREAST CANCER METASTATIC
     Route: 065
  5. VITAMINS [Concomitant]
     Active Substance: VITAMINS
     Indication: BREAST CANCER METASTATIC
  6. SELEN [Concomitant]
     Active Substance: SELENIUM
     Indication: BREAST CANCER METASTATIC
  7. BEVACIZUMAB. [Suspect]
     Active Substance: BEVACIZUMAB
     Indication: BREAST CANCER METASTATIC
     Route: 065
  8. ZOLADEX [Suspect]
     Active Substance: GOSERELIN ACETATE
     Indication: BREAST CANCER METASTATIC
     Route: 058
  9. TAMOXIFEN [Suspect]
     Active Substance: TAMOXIFEN
     Indication: BREAST CANCER METASTATIC
     Dosage: 20.0MG UNKNOWN
     Route: 048
  10. ERIBULIN [Suspect]
     Active Substance: ERIBULIN
     Indication: BREAST CANCER METASTATIC
     Route: 065
     Dates: start: 201803
  11. ZOMETA [Suspect]
     Active Substance: ZOLEDRONIC ACID
     Indication: BREAST CANCER METASTATIC
     Route: 065
     Dates: start: 200204, end: 20131213
  12. ZOMETA [Suspect]
     Active Substance: ZOLEDRONIC ACID
     Indication: BREAST CANCER METASTATIC
     Route: 065
     Dates: start: 200504

REACTIONS (9)
  - Metastases to bone [Unknown]
  - Pathological fracture [Unknown]
  - Osteonecrosis of jaw [Unknown]
  - Metastases to liver [Unknown]
  - Osteolysis [Unknown]
  - Hypertension [Unknown]
  - Paraplegia [Unknown]
  - Neoplasm progression [Unknown]
  - Malignant neoplasm of pleura [Unknown]

NARRATIVE: CASE EVENT DATE: 200204
